FAERS Safety Report 19981118 (Version 1)
Quarter: 2021Q4

REPORT INFORMATION
  Report Type: Spontaneous
  Country: CN (occurrence: CN)
  Receive Date: 20211021
  Receipt Date: 20211021
  Transmission Date: 20220303
  Serious: Yes (Other)
  Sender: FDA-Public Use
  Company Number: CN-PFIZER INC-202101369140

PATIENT
  Age: 4 Decade
  Sex: Male

DRUGS (1)
  1. ZOLOFT [Suspect]
     Active Substance: SERTRALINE HYDROCHLORIDE
     Indication: Depression
     Dosage: UNK
     Route: 048
     Dates: start: 2009, end: 2012

REACTIONS (4)
  - Retinal detachment [Recovered/Resolved]
  - Retinal degeneration [Unknown]
  - Visual field defect [Not Recovered/Not Resolved]
  - Vision blurred [Unknown]
